FAERS Safety Report 9267240 (Version 1)
Quarter: 2013Q2

REPORT INFORMATION
  Report Type: Report from Study
  Country: MX (occurrence: MX)
  Receive Date: 20130502
  Receipt Date: 20130502
  Transmission Date: 20140414
  Serious: Yes (Other)
  Sender: FDA-Public Use
  Company Number: PHHY2012MX002939

PATIENT
  Age: 63 Year
  Sex: Female

DRUGS (5)
  1. TRILEPTAL [Suspect]
     Indication: EPILEPSY
     Dosage: 3 DF(X300 MG) PER DAY
     Route: 048
     Dates: start: 201004
  2. TRILEPTAL [Suspect]
     Dosage: 4 DF, (X300 MG)PER DAY
     Route: 048
     Dates: start: 20110110
  3. TRILEPTAL [Suspect]
     Dosage: 600 MG, UNK
     Route: 048
  4. RIVOTRIL [Concomitant]
     Indication: EPILEPSY
     Dosage: 2 MG, 1/4 TABLET PER DAY
  5. KEPPRA [Concomitant]
     Indication: EPILEPSY
     Dosage: 1 DF, PER DAY

REACTIONS (8)
  - Paranoia [Not Recovered/Not Resolved]
  - Confusional state [Not Recovered/Not Resolved]
  - Hypertension [Recovered/Resolved]
  - Irritability [Recovered/Resolved]
  - Somnolence [Recovered/Resolved]
  - Anticonvulsant drug level decreased [Recovered/Resolved]
  - Diarrhoea [Recovered/Resolved]
  - Abdominal discomfort [Recovered/Resolved]
